FAERS Safety Report 6086088-3 (Version None)
Quarter: 2009Q1

REPORT INFORMATION
  Report Type: 
  Country: None (occurrence: None)
  Receive Date: 20090220
  Receipt Date: 20090217
  Transmission Date: 20090719
  Serious: Yes (Other)
  Sender: FDA-Public Use
  Company Number: PHBS2009US00843

PATIENT
  Age: 34 Year
  Sex: Male

DRUGS (3)
  1. CYCLOSPORINE [Suspect]
     Indication: DERMATITIS ATOPIC
     Dosage: 125 MG, BID
     Route: 048
  2. PREDNISOLONE [Concomitant]
     Indication: DERMATITIS ATOPIC
     Dosage: 20 MG/DAY
     Route: 048
  3. TRIAMCINOLONE [Concomitant]
     Indication: DERMATITIS ATOPIC
     Dosage: UNK
     Route: 061

REACTIONS (10)
  - CATARACT [None]
  - CATARACT OPERATION [None]
  - CORNEAL ABRASION [None]
  - CORNEAL OEDEMA [None]
  - EYE PAIN [None]
  - HERPES SIMPLEX OPHTHALMIC [None]
  - KERATITIS HERPETIC [None]
  - PHOTOPHOBIA [None]
  - SKIN LESION [None]
  - VISUAL ACUITY REDUCED [None]
